FAERS Safety Report 4293532-0 (Version None)
Quarter: 2004Q1

REPORT INFORMATION
  Report Type: 
  Country: None (occurrence: None)
  Receive Date: 20040211
  Receipt Date: 20040211
  Transmission Date: 20041129
  Serious: Yes (Other)
  Sender: FDA-Public Use
  Company Number: None

PATIENT
  Sex: Male
  Weight: 95.45 kg

DRUGS (5)
  1. LEVAQUIN [Suspect]
     Indication: PNEUMONIA
     Dosage: 250 MG QD IV
     Route: 042
     Dates: start: 20040116, end: 20040125
  2. TPN [Concomitant]
  3. LASIX [Concomitant]
  4. PHENERGAN [Concomitant]
  5. SALINE FLUSH [Concomitant]

REACTIONS (1)
  - RASH MACULO-PAPULAR [None]
